FAERS Safety Report 7471819-8 (Version None)
Quarter: 2011Q2

REPORT INFORMATION
  Report Type: 
  Country: None (occurrence: None)
  Receive Date: 20110511
  Receipt Date: 20100524
  Transmission Date: 20111010
  Serious: No
  Sender: FDA-Public Use
  Company Number: A0861029A

PATIENT
  Age: 69 Year
  Sex: Female

DRUGS (10)
  1. IMODIUM [Concomitant]
  2. FOSAMAX PLUS D [Concomitant]
  3. LAMICTAL [Concomitant]
  4. BENADRYL [Concomitant]
  5. TYKERB [Suspect]
     Dosage: 1000MG PER DAY
     Route: 048
     Dates: start: 20091001
  6. FOSAMAX [Concomitant]
  7. PRAVACHOL [Concomitant]
  8. TYKERB [Suspect]
     Indication: LUNG CANCER METASTATIC
     Dosage: 5TAB PER DAY
     Route: 048
     Dates: start: 20091001
  9. BYSTOLIC [Concomitant]
  10. SYNTHROID [Concomitant]

REACTIONS (2)
  - DIARRHOEA [None]
  - PRURITUS [None]
